FAERS Safety Report 4385461-9 (Version None)
Quarter: 2004Q2

REPORT INFORMATION
  Report Type: 
  Country: None (occurrence: None)
  Receive Date: 20040624
  Receipt Date: 20040607
  Transmission Date: 20050107
  Serious: Yes (Hospitalization)
  Sender: FDA-Public Use
  Company Number: S04-USA-03239-01

PATIENT
  Age: 76 Year
  Sex: Male
  Weight: 59.1944 kg

DRUGS (3)
  1. CELEXA [Suspect]
     Indication: DEPRESSION
     Dosage: 30 MG QD PO
     Route: 048
     Dates: end: 20031101
  2. CELEXA [Suspect]
     Indication: DEPRESSION
  3. LISINOPRIL [Suspect]
     Indication: CARDIAC FAILURE CONGESTIVE

REACTIONS (8)
  - ABNORMAL BEHAVIOUR [None]
  - CARDIAC FAILURE CONGESTIVE [None]
  - DEMENTIA [None]
  - DISINHIBITION [None]
  - IMPAIRED SELF-CARE [None]
  - PNEUMONIA [None]
  - PSYCHOTIC DISORDER [None]
  - RENAL FAILURE CHRONIC [None]
